FAERS Safety Report 5218786-5 (Version None)
Quarter: 2007Q1

REPORT INFORMATION
  Report Type: 
  Country: None (occurrence: None)
  Receive Date: 20070123
  Receipt Date: 20070117
  Transmission Date: 20070707
  Serious: Yes (Hospitalization)
  Sender: FDA-Public Use
  Company Number: 163-20785-06080981

PATIENT
  Age: 62 Year
  Sex: Female
  Weight: 48.5349 kg

DRUGS (15)
  1. THALOMID [Suspect]
     Indication: MULTIPLE MYELOMA
     Dosage: 100 MG, 2 IN 1 D, ORAL
     Route: 048
     Dates: start: 20060622, end: 20060818
  2. ACTONEL [Concomitant]
  3. MUCINEX (ENTEX) [Concomitant]
  4. ADVAIR (SERETIDE MITE) (INHALANT) [Concomitant]
  5. COMBIVENT [Concomitant]
  6. PRILOSEC OTC (OMEPRAZOLE) [Concomitant]
  7. DEXAMETHASONE TAB [Concomitant]
  8. NYSTATIN [Concomitant]
  9. BACTRIM DS [Concomitant]
  10. ASPIRIN [Concomitant]
  11. OXYCONTIN [Concomitant]
  12. PROTONIX [Concomitant]
  13. DECADRON [Concomitant]
  14. MUCOMYST (ACETYLCYSTEINE) (SOLUTION) [Concomitant]
  15. OXYCODONE HCL [Concomitant]

REACTIONS (11)
  - CHRONIC OBSTRUCTIVE PULMONARY DISEASE [None]
  - DEHYDRATION [None]
  - DIABETES MELLITUS NON-INSULIN-DEPENDENT [None]
  - HYPOTENSION [None]
  - PNEUMONIA [None]
  - PNEUMOTHORAX [None]
  - RASH ERYTHEMATOUS [None]
  - RASH GENERALISED [None]
  - RASH PRURITIC [None]
  - RENAL FAILURE ACUTE [None]
  - TACHYCARDIA [None]
